FAERS Safety Report 20951249 (Version 2)
Quarter: 2023Q1

REPORT INFORMATION
  Report Type: Spontaneous
  Country: ES (occurrence: ES)
  Receive Date: 20220613
  Receipt Date: 20230113
  Transmission Date: 20230417
  Serious: Yes (Other)
  Sender: FDA-Public Use
  Company Number: None

PATIENT
  Age: 77 Year
  Sex: Female
  Weight: 60 kg

DRUGS (4)
  1. ENCORAFENIB [Suspect]
     Active Substance: ENCORAFENIB
     Indication: Malignant melanoma
     Dosage: 450 MG/ 24 HRS
     Route: 048
     Dates: start: 20220413, end: 20220707
  2. BINIMETINIB [Suspect]
     Active Substance: BINIMETINIB
     Indication: Malignant melanoma
     Dosage: 45 MG, BID (2/DAY)
     Route: 048
     Dates: start: 20220413, end: 20220707
  3. FAMOTIDINA [Concomitant]
     Indication: Abdominal discomfort
     Dosage: UNK
     Route: 048
     Dates: start: 20220512
  4. AMERIDE [Concomitant]
     Indication: Polyuria
     Dosage: 1 TABLET A DAY
     Route: 048
     Dates: start: 2021

REACTIONS (3)
  - Hepatotoxicity [Recovered/Resolved]
  - Abdominal pain [Recovered/Resolved]
  - Diarrhoea [Recovered/Resolved]

NARRATIVE: CASE EVENT DATE: 20220512
